FAERS Safety Report 5892607-X (Version None)
Quarter: 2008Q3

REPORT INFORMATION
  Report Type: 
  Country: None (occurrence: None)
  Receive Date: 20080923
  Receipt Date: 20080912
  Transmission Date: 20090109
  Serious: Yes (Other)
  Sender: FDA-Public Use
  Company Number: US-ROCHE-586152

PATIENT
  Sex: Female
  Weight: 78.9 kg

DRUGS (2)
  1. CAPECITABINE [Suspect]
     Indication: BREAST CANCER
     Dosage: ONE WEEK ON AND TWO WEEKS OFF
     Route: 065
  2. CHEMOTHERAPY [Concomitant]
     Dosage: DRUG: IV CHEMOTHERAPY
     Route: 042

REACTIONS (1)
  - DISEASE PROGRESSION [None]
